FAERS Safety Report 10795222 (Version 1)
Quarter: 2015Q1

REPORT INFORMATION
  Report Type: Spontaneous
  Country: US (occurrence: US)
  Receive Date: 20150214
  Receipt Date: 20150214
  Transmission Date: 20150721
  Serious: No
  Sender: FDA-Public Use
  Company Number: US-GLAXOSMITHKLINE-A1056886A

PATIENT

DRUGS (1)
  1. NICOTINE PATCH UNKNOWN BRAND TRANSDERMAL PATCH [Suspect]
     Active Substance: NICOTINE

REACTIONS (2)
  - Application site pain [Unknown]
  - Application site erythema [Unknown]
